FAERS Safety Report 18879924 (Version 1)
Quarter: 2021Q1

REPORT INFORMATION
  Report Type: Spontaneous
  Country: TR (occurrence: TR)
  Receive Date: 20210211
  Receipt Date: 20210211
  Transmission Date: 20210420
  Serious: Yes (Life-Threatening, Hospitalization, Other)
  Sender: FDA-Public Use
  Company Number: TR-LUPIN PHARMACEUTICALS INC.-2021-01506

PATIENT
  Age: 16 Year
  Sex: Female

DRUGS (7)
  1. CEFPROZIL TABLETS USP 500MG [Suspect]
     Active Substance: CEFPROZIL
     Indication: PRODUCT USED FOR UNKNOWN INDICATION
     Dosage: 20 DOSAGE FORM, UNK
     Route: 065
  2. DICLOFENAC [Suspect]
     Active Substance: DICLOFENAC
     Indication: PRODUCT USED FOR UNKNOWN INDICATION
     Dosage: 20 DOSAGE FORM, UNK (SUSTAINED RELEASE TABLETS)
     Route: 065
  3. THIOCOLCHICOSIDE [Suspect]
     Active Substance: THIOCOLCHICOSIDE
     Indication: PRODUCT USED FOR UNKNOWN INDICATION
     Dosage: 5 DOSAGE FORM, UNK
     Route: 065
  4. AMPICILLIN [Suspect]
     Active Substance: AMPICILLIN
     Indication: PRODUCT USED FOR UNKNOWN INDICATION
     Dosage: 4 DOSAGE FORM, UNK
     Route: 065
  5. CEFDINIR. [Suspect]
     Active Substance: CEFDINIR
     Indication: PRODUCT USED FOR UNKNOWN INDICATION
     Dosage: 20 DOSAGE FORM, UNK (TABLET)
     Route: 065
  6. PARACETAMOL/OXOLAMINE CITRATE/CHLORPHENIRAMINE [Suspect]
     Active Substance: ACETAMINOPHEN\CHLORPHENIRAMINE\OXOLAMINE
     Indication: PRODUCT USED FOR UNKNOWN INDICATION
     Dosage: 15 DOSAGE FORM, UNK
     Route: 065
  7. FLURBIPROFEN. [Suspect]
     Active Substance: FLURBIPROFEN
     Indication: SUICIDE ATTEMPT
     Dosage: 20 DOSAGE FORM, UNK
     Route: 065

REACTIONS (5)
  - Altered state of consciousness [Recovering/Resolving]
  - Toxicity to various agents [Recovering/Resolving]
  - Suicide attempt [Recovering/Resolving]
  - Abdominal pain [Recovering/Resolving]
  - Intentional overdose [Unknown]
